FAERS Safety Report 7089960-0 (Version None)
Quarter: 2010Q4

REPORT INFORMATION
  Report Type: 
  Country: None (occurrence: None)
  Receive Date: 20101109
  Receipt Date: 20101102
  Transmission Date: 20110411
  Serious: Yes (Hospitalization)
  Sender: FDA-Public Use
  Company Number: DE-ABBOTT-10P-062-0654940-00

PATIENT
  Sex: Male
  Weight: 134 kg

DRUGS (4)
  1. HUMIRA [Suspect]
     Indication: RHEUMATOID ARTHRITIS
     Route: 058
     Dates: start: 20100421, end: 20100630
  2. HUMIRA [Suspect]
     Route: 058
     Dates: start: 20100922
  3. EXFORGE [Concomitant]
     Indication: HYPERTENSION
     Dosage: 5/160 MG QD
     Route: 048
     Dates: start: 20090601
  4. BENZPROMARON [Concomitant]
     Indication: GOUT
     Route: 048
     Dates: start: 20090601

REACTIONS (2)
  - CHOLELITHIASIS [None]
  - PANCREATITIS [None]
